FAERS Safety Report 20946916 (Version 3)
Quarter: 2022Q3

REPORT INFORMATION
  Report Type: Spontaneous
  Country: US (occurrence: None)
  Receive Date: 20220610
  Receipt Date: 20220815
  Transmission Date: 20221027
  Serious: Yes (Death)
  Sender: FDA-Public Use
  Company Number: US-ROCHE-3115095

PATIENT
  Sex: Female
  Weight: 83.3 kg

DRUGS (10)
  1. ESBRIET [Suspect]
     Active Substance: PIRFENIDONE
     Indication: Idiopathic pulmonary fibrosis
     Route: 048
     Dates: start: 20210824
  2. TYLENOL [Concomitant]
     Active Substance: ACETAMINOPHEN
     Indication: Pain
     Route: 048
  3. ASPIRIN [Concomitant]
     Active Substance: ASPIRIN
     Route: 048
  4. BENZONATATE [Concomitant]
     Active Substance: BENZONATATE
     Dosage: 2 CAPSULES 3 TIMES A DAY
     Route: 048
  5. TIADYLT ER [Concomitant]
     Active Substance: DILTIAZEM HYDROCHLORIDE
     Dosage: 1 CAPSULE EVERY DAY
     Route: 048
  6. COLACE [Concomitant]
     Active Substance: DOCUSATE SODIUM
     Dosage: 1 CAPSULE
     Route: 048
  7. LOSARTAN [Concomitant]
     Active Substance: LOSARTAN
     Dosage: 1 TABLET
     Route: 048
  8. PANTOPRAZOLE [Concomitant]
     Active Substance: PANTOPRAZOLE
     Dosage: 1 TABLET
     Route: 048
  9. RESTASIS [Concomitant]
     Active Substance: CYCLOSPORINE
     Dosage: 1 DROP BOTH THE EYES
     Route: 047
  10. MIRALAX [Concomitant]
     Active Substance: POLYETHYLENE GLYCOL 3350
     Route: 048

REACTIONS (3)
  - Respiratory failure [Fatal]
  - Troponin increased [Fatal]
  - Idiopathic pulmonary fibrosis [Fatal]
